FAERS Safety Report 5383844-1 (Version None)
Quarter: 2007Q3

REPORT INFORMATION
  Report Type: 
  Country: None (occurrence: None)
  Receive Date: 20070706
  Receipt Date: 20070627
  Transmission Date: 20080115
  Serious: Yes (Death)
  Sender: FDA-Public Use
  Company Number: S07-USA-02764-01

PATIENT
  Sex: Female

DRUGS (2)
  1. LEXAPRO [Suspect]
     Dates: end: 20070101
  2. ETHANOL [Suspect]
     Dates: end: 20070101

REACTIONS (1)
  - DRUG TOXICITY [None]
